FAERS Safety Report 4882408-3 (Version None)
Quarter: 2006Q1

REPORT INFORMATION
  Report Type: 
  Country: None (occurrence: None)
  Receive Date: 20060117
  Receipt Date: 20050727
  Transmission Date: 20060701
  Serious: Yes (Hospitalization)
  Sender: FDA-Public Use
  Company Number: 200512552FR

PATIENT
  Age: 75 Year
  Sex: Male
  Weight: 68 kg

DRUGS (11)
  1. DAONIL [Suspect]
     Route: 048
     Dates: end: 20050123
  2. HEMI-DAONIL [Suspect]
     Route: 048
     Dates: end: 20050123
  3. TRINIPATCH [Concomitant]
     Route: 062
     Dates: end: 20050204
  4. KARDEGIC [Concomitant]
     Route: 048
  5. COZAAR [Concomitant]
     Route: 048
  6. MOPRAL [Concomitant]
     Route: 048
     Dates: end: 20050126
  7. CORBIONAX [Concomitant]
     Route: 048
  8. FUROSEMIDE [Concomitant]
     Indication: ESSENTIAL HYPERTENSION
     Route: 048
     Dates: end: 20050123
  9. ZOLOFT [Concomitant]
     Indication: DEPRESSION
     Route: 048
     Dates: end: 20050123
  10. TAHOR [Concomitant]
     Indication: HYPERCHOLESTEROLAEMIA
     Route: 048
  11. ZANIDIP [Concomitant]
     Indication: MYOCARDIAL ISCHAEMIA
     Route: 048
     Dates: end: 20050123

REACTIONS (8)
  - CEREBROVASCULAR ACCIDENT [None]
  - COGNITIVE DISORDER [None]
  - CONFUSIONAL STATE [None]
  - DISTURBANCE IN ATTENTION [None]
  - FALL [None]
  - HEAD INJURY [None]
  - HYPOGLYCAEMIA [None]
  - VASCULAR DEMENTIA [None]
